FAERS Safety Report 19429614 (Version 1)
Quarter: 2021Q2

REPORT INFORMATION
  Report Type: Spontaneous
  Country: GB (occurrence: GB)
  Receive Date: 20210617
  Receipt Date: 20210617
  Transmission Date: 20210717
  Serious: Yes (Disabling, Other)
  Sender: FDA-Public Use
  Company Number: GB-GILEAD-2021-0536648

PATIENT
  Age: 66 Year
  Sex: Male

DRUGS (2)
  1. OCUVITE LUTEIN [ASCORBIC ACID;SELENIUM;TOCOPHEROL;XANTOFYL;ZINC] [Concomitant]
     Indication: ILL-DEFINED DISORDER
  2. TRUVADA [Suspect]
     Active Substance: EMTRICITABINE\TENOFOVIR DISOPROXIL FUMARATE
     Indication: HIV INFECTION
     Dosage: TRUVADA / TRAVENS ? EMTRICABINE 200MG + TENOFOVIR 300MG
     Route: 048
     Dates: start: 2014, end: 20210514

REACTIONS (1)
  - Retinopathy [Unknown]
